FAERS Safety Report 9274432 (Version 1)
Quarter: 2013Q2

REPORT INFORMATION
  Report Type: Spontaneous
  Country: GB (occurrence: GB)
  Receive Date: 20130506
  Receipt Date: 20130506
  Transmission Date: 20140414
  Serious: Yes (Life-Threatening, Hospitalization)
  Sender: FDA-Public Use
  Company Number: GB-009507513-1305GBR001194

PATIENT
  Age: 9 Decade
  Sex: Female
  Weight: 44.2 kg

DRUGS (5)
  1. ZISPIN SOLTAB [Suspect]
     Indication: DEPRESSION
     Dosage: 30 MG, QD
     Route: 048
     Dates: start: 20130301, end: 20130412
  2. AMLODIPINE [Concomitant]
  3. CITALOPRAM [Concomitant]
  4. DIGOXIN [Concomitant]
  5. LEVOTHYROXINE SODIUM [Concomitant]
     Route: 048

REACTIONS (2)
  - Neutropenic sepsis [Recovering/Resolving]
  - Neutropenia [Recovering/Resolving]
